FAERS Safety Report 24431619 (Version 1)
Quarter: 2024Q4

REPORT INFORMATION
  Report Type: Spontaneous
  Country: DE (occurrence: DE)
  Receive Date: 20241014
  Receipt Date: 20241014
  Transmission Date: 20250115
  Serious: Yes (Other)
  Sender: BRISTOL-MYERS SQUIBB COMPANY
  Company Number: DE-BRISTOL-MYERS SQUIBB COMPANY-2024-160353

PATIENT
  Age: 85 Year
  Sex: Male

DRUGS (1)
  1. ELIQUIS [Suspect]
     Active Substance: APIXABAN
     Indication: Atrial fibrillation

REACTIONS (6)
  - Pharyngeal haemorrhage [Unknown]
  - Gingival bleeding [Unknown]
  - Fatigue [Unknown]
  - Dizziness [Unknown]
  - Postoperative ileus [Unknown]
  - Megacolon [Unknown]
